FAERS Safety Report 14715945 (Version 2)
Quarter: 2018Q2

REPORT INFORMATION
  Report Type: Spontaneous
  Country: US (occurrence: US)
  Receive Date: 20180404
  Receipt Date: 20180411
  Transmission Date: 20180711
  Serious: No
  Sender: FDA-Public Use
  Company Number: US-AMGEN-USASP2018022209

PATIENT
  Age: 80 Year
  Sex: Female
  Weight: 58.5 kg

DRUGS (2)
  1. PROLIA [Suspect]
     Active Substance: DENOSUMAB
     Indication: OSTEOPOROSIS POSTMENOPAUSAL
     Dosage: 60 MG, Q6MO
     Route: 058
     Dates: start: 2013
  2. PROLIA [Suspect]
     Active Substance: DENOSUMAB
     Indication: OSTEOPOROSIS
     Dosage: 60 MG, Q6MO
     Route: 058
     Dates: start: 201712

REACTIONS (4)
  - Groin pain [Recovering/Resolving]
  - Arthralgia [Recovering/Resolving]
  - Muscular weakness [Not Recovered/Not Resolved]
  - Pain in extremity [Recovering/Resolving]
